FAERS Safety Report 20461643 (Version 1)
Quarter: 2022Q1

REPORT INFORMATION
  Report Type: Spontaneous
  Country: CA (occurrence: CA)
  Receive Date: 20220211
  Receipt Date: 20220211
  Transmission Date: 20220423
  Serious: Yes (Life-Threatening, Other)
  Sender: FDA-Public Use
  Company Number: CA-AMERICAN REGENT INC-2022000327

PATIENT
  Age: 75 Year
  Sex: Male

DRUGS (1)
  1. VENOFER [Suspect]
     Active Substance: IRON SUCROSE
     Indication: Haemoglobin decreased
     Dosage: 300 MILLIGRAM, 1 EVERY 48 HOURS
     Route: 042

REACTIONS (5)
  - Cold sweat [Unknown]
  - Endotracheal intubation [Unknown]
  - Mechanical ventilation [Unknown]
  - Hyperhidrosis [Unknown]
  - Depressed level of consciousness [Unknown]
